FAERS Safety Report 19050776 (Version 1)
Quarter: 2021Q1

REPORT INFORMATION
  Report Type: Spontaneous
  Country: US (occurrence: US)
  Receive Date: 20210323
  Receipt Date: 20210323
  Transmission Date: 20210420
  Serious: Yes (Hospitalization)
  Sender: FDA-Public Use
  Company Number: None

PATIENT
  Age: 78 Year
  Sex: Female

DRUGS (8)
  1. AMBRISENTAN [Concomitant]
     Active Substance: AMBRISENTAN
  2. NADOLOL. [Concomitant]
     Active Substance: NADOLOL
  3. PANTOPRAZOLE [Concomitant]
     Active Substance: PANTOPRAZOLE
  4. TADALAFIL. [Suspect]
     Active Substance: TADALAFIL
     Indication: PULMONARY HYPERTENSION
     Route: 048
     Dates: start: 20201017
  5. FUROSEMIDE. [Concomitant]
     Active Substance: FUROSEMIDE
  6. ATORVASTATIN [Concomitant]
     Active Substance: ATORVASTATIN
  7. HUMALOG MIX [Concomitant]
     Active Substance: INSULIN LISPRO
  8. SYNTHROID [Concomitant]
     Active Substance: LEVOTHYROXINE SODIUM

REACTIONS (1)
  - Ascites [None]

NARRATIVE: CASE EVENT DATE: 20210321
